FAERS Safety Report 5241925-7 (Version None)
Quarter: 2007Q1

REPORT INFORMATION
  Report Type: 
  Country: None (occurrence: None)
  Receive Date: 20070220
  Receipt Date: 20070213
  Transmission Date: 20070707
  Serious: Yes (Hospitalization)
  Sender: FDA-Public Use
  Company Number: DE-PFIZER INC-2007011851

PATIENT
  Age: 53 Year
  Sex: Male
  Weight: 73 kg

DRUGS (4)
  1. GENOTROPIN [Suspect]
     Indication: HYPOPITUITARISM
  2. HYDROCORTISON [Concomitant]
     Dates: start: 19870601
  3. TESTOSTERONE [Concomitant]
     Dates: start: 19970601
  4. LEVOTHYROXINE SODIUM [Concomitant]

REACTIONS (1)
  - PITUITARY TUMOUR BENIGN [None]
